FAERS Safety Report 13117258 (Version 1)
Quarter: 2017Q1

REPORT INFORMATION
  Report Type: Report from Study
  Country: CN (occurrence: CN)
  Receive Date: 20170116
  Receipt Date: 20170116
  Transmission Date: 20170428
  Serious: Yes (Other)
  Sender: FDA-Public Use
  Company Number: CN-GLAXOSMITHKLINE-CN2017GSK004476

PATIENT
  Sex: Female

DRUGS (1)
  1. LAMIVUDINE. [Suspect]
     Active Substance: LAMIVUDINE
     Indication: ANTIVIRAL PROPHYLAXIS

REACTIONS (4)
  - Hepatitis [Unknown]
  - Drug ineffective [Unknown]
  - Alanine aminotransferase increased [Unknown]
  - Exposure during pregnancy [Unknown]
